FAERS Safety Report 9448820 (Version 1)
Quarter: 2013Q3

REPORT INFORMATION
  Report Type: Spontaneous
  Country: US (occurrence: US)
  Receive Date: 20130808
  Receipt Date: 20130808
  Transmission Date: 20140515
  Serious: Yes (Hospitalization)
  Sender: FDA-Public Use
  Company Number: US-TEVA-424305USA

PATIENT
  Age: 64 Year
  Sex: Female
  Weight: 118.04 kg

DRUGS (2)
  1. QVAR [Suspect]
     Indication: ASTHMA
  2. TWO OTHER INHALERS [Concomitant]
     Indication: MUSCLE SPASMS

REACTIONS (1)
  - Cerebrovascular accident [Unknown]
